FAERS Safety Report 8608013-0 (Version None)
Quarter: 2012Q3

REPORT INFORMATION
  Report Type: 
  Country: None (occurrence: None)
  Receive Date: 20120821
  Receipt Date: 20120810
  Transmission Date: 20120928
  Serious: Yes (Hospitalization)
  Sender: FDA-Public Use
  Company Number: JP-AMGEN-JPNCT2012045071

PATIENT
  Age: 78 Year
  Sex: Male
  Weight: 50 kg

DRUGS (20)
  1. DARBEPOETIN ALFA [Suspect]
     Dosage: 40 MUG, Q3WK
     Route: 058
     Dates: start: 20110823, end: 20110913
  2. ALLOPURINOL [Concomitant]
     Dosage: UNK
     Route: 048
  3. PRECIPITATED CALCIUM CARBONATE [Concomitant]
     Indication: METABOLIC ACIDOSIS
     Dosage: UNK
     Route: 048
  4. SOFTEAR [Concomitant]
     Dosage: UNK
     Route: 047
  5. OLMESARTAN MEDOXOMIL [Concomitant]
     Dosage: UNK
     Route: 048
  6. SODIUM BICARBONATE [Concomitant]
     Dosage: UNK
     Route: 048
  7. ATELEC [Concomitant]
     Dosage: UNK
     Route: 048
  8. OTHER COLD PREPARATIONS [Concomitant]
     Dosage: UNK
     Route: 048
  9. CARBADOGEN [Concomitant]
     Dosage: UNK
     Route: 048
  10. EMPYNASE P [Concomitant]
     Dosage: UNK
     Route: 048
  11. DARBEPOETIN ALFA [Suspect]
     Indication: NEPHROGENIC ANAEMIA
     Dosage: 30 MUG, Q3WK
     Route: 058
     Dates: start: 20110621, end: 20110802
  12. DARBEPOETIN ALFA [Suspect]
     Dosage: 40 MUG, Q3WK
     Route: 058
     Dates: start: 20110927, end: 20110927
  13. PROTECADIN [Concomitant]
     Indication: GASTRITIS
     Dosage: UNK
     Route: 048
  14. KETOPROFEN [Concomitant]
     Dosage: UNK
     Route: 062
  15. FEROTYM [Concomitant]
     Dosage: UNK
     Route: 048
  16. PANCREAZE [Concomitant]
     Indication: GASTRITIS
     Dosage: UNK
     Route: 048
  17. KREMEZIN [Concomitant]
     Dosage: UNK
     Route: 048
  18. LEVOFLOXACIN [Concomitant]
     Dosage: UNK
     Route: 048
  19. DARBEPOETIN ALFA [Suspect]
     Dosage: 40 MUG, Q3WK
     Route: 058
     Dates: start: 20111018, end: 20111220
  20. AMLODIPINE [Concomitant]
     Dosage: UNK
     Route: 048

REACTIONS (5)
  - BILE DUCT STONE [None]
  - AORTIC VALVE STENOSIS [None]
  - CHOLECYSTITIS [None]
  - CHOLELITHIASIS [None]
  - PANCREATITIS [None]
